FAERS Safety Report 10206209 (Version 1)
Quarter: 2014Q2

REPORT INFORMATION
  Report Type: Spontaneous
  Country: US (occurrence: None)
  Receive Date: 20140528
  Receipt Date: 20140528
  Transmission Date: 20141212
  Serious: No
  Sender: FDA-Public Use
  Company Number: None

PATIENT
  Age: 36 Year
  Sex: Female

DRUGS (9)
  1. SEVOFLURANE [Suspect]
     Dates: start: 20130201, end: 20130201
  2. FLEXERIL [Suspect]
     Dates: start: 20130201, end: 20130204
  3. KEFLEX (CEPHALEXIN) [Suspect]
     Dates: start: 20130201, end: 20130205
  4. HYDROMORPHONE [Concomitant]
  5. ONDANSETRON [Concomitant]
  6. CLINDAMYCIN [Concomitant]
  7. METOCLOPRAMIDE [Concomitant]
  8. HYDROCODONE [Concomitant]
  9. HYDROXIZINE [Concomitant]

REACTIONS (12)
  - Drug-induced liver injury [None]
  - Fatigue [None]
  - Nausea [None]
  - Weight decreased [None]
  - Jaundice [None]
  - Pruritus [None]
  - Alanine aminotransferase increased [None]
  - Aspartate aminotransferase increased [None]
  - Blood alkaline phosphatase increased [None]
  - Blood bilirubin increased [None]
  - Haemangioma [None]
  - Antinuclear antibody positive [None]
